FAERS Safety Report 10453869 (Version 1)
Quarter: 2014Q3

REPORT INFORMATION
  Report Type: Spontaneous
  Country: US (occurrence: US)
  Receive Date: 20140915
  Receipt Date: 20140915
  Transmission Date: 20150326
  Serious: No
  Sender: FDA-Public Use
  Company Number: US-BRISTOL-MYERS SQUIBB COMPANY-20587234

PATIENT
  Sex: Male

DRUGS (14)
  1. ISOSORBIDE [Concomitant]
     Active Substance: ISOSORBIDE
  2. FUROSEMIDE. [Concomitant]
     Active Substance: FUROSEMIDE
  3. GLIPIZIDE. [Concomitant]
     Active Substance: GLIPIZIDE
  4. TOPROL XL [Concomitant]
     Active Substance: METOPROLOL SUCCINATE
  5. ASPIRIN. [Concomitant]
     Active Substance: ASPIRIN
  6. CALCIUM [Concomitant]
     Active Substance: CALCIUM
  7. METFORMIN [Concomitant]
     Active Substance: METFORMIN HYDROCHLORIDE
  8. ATENOLOL. [Concomitant]
     Active Substance: ATENOLOL
  9. LIPITOR [Concomitant]
     Active Substance: ATORVASTATIN CALCIUM
  10. ELIQUIS [Suspect]
     Active Substance: APIXABAN
     Indication: THROMBOSIS
     Dosage: STRENGTH ;5 MG TABS
     Route: 048
  11. PROBIOTICA [Concomitant]
     Active Substance: PROBIOTICS NOS
  12. JANUVIA [Concomitant]
     Active Substance: SITAGLIPTIN PHOSPHATE
  13. FOLIC ACID. [Concomitant]
     Active Substance: FOLIC ACID
  14. WARFARIN [Concomitant]
     Active Substance: WARFARIN

REACTIONS (2)
  - Pruritus [Unknown]
  - Rash [Not Recovered/Not Resolved]
